FAERS Safety Report 9101883 (Version 2)
Quarter: 2013Q1

REPORT INFORMATION
  Report Type: Spontaneous
  Country: CZ (occurrence: CZ)
  Receive Date: 20130218
  Receipt Date: 20130225
  Transmission Date: 20140127
  Serious: Yes (Hospitalization)
  Sender: FDA-Public Use
  Company Number: PHHY2013CZ014007

PATIENT
  Age: 55 Year
  Sex: Female

DRUGS (4)
  1. OSPAMOX [Suspect]
     Indication: BRONCHOPNEUMONIA
     Dosage: 1 G, DAILY
     Route: 048
     Dates: start: 20130125, end: 20130128
  2. AMPICILLIN [Suspect]
     Indication: BRONCHOPNEUMONIA
     Dosage: 2 G, DAILY DOSE
     Route: 042
     Dates: start: 20130120, end: 20130124
  3. EUTHYROX [Concomitant]
  4. BISOPROLOL [Concomitant]

REACTIONS (4)
  - Dysphagia [Recovered/Resolved]
  - Dyspnoea [Recovered/Resolved]
  - Rash generalised [Recovered/Resolved]
  - Drug eruption [Recovered/Resolved]
